FAERS Safety Report 9520609 (Version 19)
Quarter: 2017Q2

REPORT INFORMATION
  Report Type: Spontaneous
  Country: GB (occurrence: GB)
  Receive Date: 20130913
  Receipt Date: 20170524
  Transmission Date: 20170830
  Serious: Yes (Other)
  Sender: FDA-Public Use
  Company Number: GB-009507513-0910GBR00060

PATIENT
  Age: 42 Year
  Sex: Female
  Weight: 74 kg

DRUGS (21)
  1. ZIDOVUDINE. [Suspect]
     Active Substance: ZIDOVUDINE
     Indication: ANTIVIRAL PROPHYLAXIS
     Dosage: DOSAGE FORM: UNSPECIFIED.
     Route: 048
  2. ZIDOVUDINE. [Suspect]
     Active Substance: ZIDOVUDINE
     Dosage: DOSAGE FORM: UNSPECIFIED.
     Route: 048
  3. PREDNISOLONE. [Concomitant]
     Active Substance: PREDNISOLONE
     Indication: PRODUCT USED FOR UNKNOWN INDICATION
     Dosage: 25 MG, UNK
     Route: 048
  4. OXYGEN. [Concomitant]
     Active Substance: OXYGEN
     Dosage: 25 MG, UNK
     Route: 055
  5. TIPRANAVIR [Concomitant]
     Active Substance: TIPRANAVIR
     Dosage: DOSAGE FORM: UNSPECIFIED.
     Dates: start: 20081023
  6. NORVIR [Suspect]
     Active Substance: RITONAVIR
     Indication: HIV INFECTION
     Dosage: 100 MG 1/1 DAY
     Route: 065
  7. TRUVADA [Suspect]
     Active Substance: EMTRICITABINE\TENOFOVIR DISOPROXIL FUMARATE
     Indication: HIV INFECTION
     Dosage: DOSAGE FORM: UNSPECIFEID, 18  MONTHS
     Route: 048
     Dates: start: 20070905, end: 20081023
  8. ENFUVIRTIDE [Concomitant]
     Active Substance: ENFUVIRTIDE
     Dosage: DOSAGE FORM: UNSPECIFIED.
  9. NOVORAPID [Concomitant]
     Active Substance: INSULIN ASPART
     Dosage: DOSAGE FORM: UNSPECIFIED.
  10. INTELENCE [Suspect]
     Active Substance: ETRAVIRINE
     Dosage: 500 MG, BID
     Route: 048
     Dates: start: 20081023
  11. NORVIR [Suspect]
     Active Substance: RITONAVIR
     Dosage: 100 MG, BID
     Dates: start: 20081023
  12. ISENTRESS [Suspect]
     Active Substance: RALTEGRAVIR POTASSIUM
     Dosage: DOSAGE FORM: UNSPECIFIED.
     Dates: start: 20081023, end: 20090221
  13. PREZISTA [Suspect]
     Active Substance: DARUNAVIR ETHANOLATE
     Indication: HIV INFECTION
     Dosage: 600 MG, 2/1 DAYS
     Route: 048
     Dates: start: 20081023
  14. ISENTRESS [Suspect]
     Active Substance: RALTEGRAVIR POTASSIUM
     Indication: HIV INFECTION
     Dosage: DOSAGE FORM: UNSPECIFIED, FOR 2 YEARS AND 4 MONTHS
     Route: 048
  15. NORVIR [Suspect]
     Active Substance: RITONAVIR
     Dosage: 200 MG, BID
     Route: 048
     Dates: start: 20060905, end: 20081022
  16. NITROUS OXIDE. [Concomitant]
     Active Substance: NITROUS OXIDE
     Dosage: DOSAGE FORM: UNSPECIFIED.
  17. APTIVUS [Suspect]
     Active Substance: TIPRANAVIR
     Indication: HIV INFECTION
     Dosage: 500 MG, 2/1 DAYS
     Route: 048
     Dates: start: 20060905, end: 20081023
  18. INTELENCE [Suspect]
     Active Substance: ETRAVIRINE
     Indication: HIV INFECTION
     Dosage: 500 MG, BID
     Route: 048
     Dates: start: 20081023, end: 20081023
  19. INTELENCE [Suspect]
     Active Substance: ETRAVIRINE
     Dosage: 1000 MG, QD
     Dates: start: 20081023
  20. INSULIN [Concomitant]
     Active Substance: INSULIN NOS
     Indication: GESTATIONAL DIABETES
     Dosage: DOSAGE FORM: UNSPECIFIED.
  21. NOVORAPID [Concomitant]
     Active Substance: INSULIN ASPART
     Indication: GESTATIONAL DIABETES
     Dosage: DOSAGE FORM: UNSPECIFIED.
     Route: 058
     Dates: end: 20091022

REACTIONS (6)
  - Lipodystrophy acquired [Recovered/Resolved]
  - Premature labour [Recovered/Resolved]
  - Aspartate aminotransferase abnormal [Recovered/Resolved]
  - Drug-induced liver injury [Unknown]
  - Alanine aminotransferase abnormal [Recovered/Resolved]
  - Exposure during pregnancy [Recovered/Resolved]

NARRATIVE: CASE EVENT DATE: 20090221
